FAERS Safety Report 7686323-1 (Version None)
Quarter: 2011Q3

REPORT INFORMATION
  Report Type: 
  Country: None (occurrence: None)
  Receive Date: 20110816
  Receipt Date: 20110727
  Transmission Date: 20111222
  Serious: Yes (Hospitalization)
  Sender: FDA-Public Use
  Company Number: US-GLAXOSMITHKLINE-A0839784A

PATIENT
  Age: 76 Year
  Sex: Male
  Weight: 109.1 kg

DRUGS (13)
  1. FLONASE [Concomitant]
  2. ZYRTEC [Concomitant]
  3. UNIPHYL [Concomitant]
  4. LASIX [Concomitant]
  5. KLOR-CON [Concomitant]
  6. AVANDIA [Suspect]
     Indication: DIABETES MELLITUS
     Dosage: 4MG TWICE PER DAY
     Route: 048
     Dates: start: 20050101, end: 20070801
  7. NEURONTIN [Concomitant]
  8. KLONOPIN [Concomitant]
  9. PLAVIX [Concomitant]
  10. ALTACE [Concomitant]
  11. LIPITOR [Concomitant]
  12. CLOPIDOGREL [Concomitant]
  13. GABAPENTIN [Concomitant]

REACTIONS (2)
  - CARDIAC FAILURE CONGESTIVE [None]
  - MYOCARDIAL INFARCTION [None]
